FAERS Safety Report 5000917-3 (Version None)
Quarter: 2006Q2

REPORT INFORMATION
  Report Type: 
  Country: None (occurrence: None)
  Receive Date: 20060512
  Receipt Date: 20050706
  Transmission Date: 20061013
  Serious: Yes (Hospitalization, Disabling)
  Sender: FDA-Public Use
  Company Number: US-MERCK-0507USA00611

PATIENT
  Age: 59 Year
  Sex: Female
  Weight: 72 kg

DRUGS (3)
  1. VIOXX [Suspect]
     Indication: ARTHRITIS
     Route: 048
     Dates: start: 19990101, end: 20011227
  2. CARDIZEM CD [Concomitant]
     Route: 065
  3. EVISTA [Concomitant]
     Route: 065

REACTIONS (8)
  - BRADYCARDIA [None]
  - CATHETER SITE HAEMORRHAGE [None]
  - CHEST PAIN [None]
  - GASTROENTERITIS [None]
  - MIGRAINE [None]
  - MYOCARDIAL INFARCTION [None]
  - POST PROCEDURAL NAUSEA [None]
  - SINUS ARRHYTHMIA [None]
